FAERS Safety Report 23849341 (Version 1)
Quarter: 2024Q2

REPORT INFORMATION
  Report Type: Spontaneous
  Country: US (occurrence: None)
  Receive Date: 20240512
  Receipt Date: 20240512
  Transmission Date: 20240716
  Serious: Yes (Hospitalization)
  Sender: FDA-Public Use
  Company Number: None

PATIENT
  Age: 76 Year
  Sex: Male
  Weight: 79 kg

DRUGS (1)
  1. AMOXICILLIN\CLAVULANATE POTASSIUM [Suspect]
     Active Substance: AMOXICILLIN\CLAVULANATE POTASSIUM
     Dosage: OTHER QUANTITY : 875/125 MG;?FREQUENCY : TWICE A DAY;?
     Route: 048
     Dates: start: 20200206, end: 20200215

REACTIONS (4)
  - Hyperbilirubinaemia [None]
  - Blood alkaline phosphatase increased [None]
  - Hypertransaminasaemia [None]
  - Hepatic enzyme abnormal [None]

NARRATIVE: CASE EVENT DATE: 20200215
